FAERS Safety Report 9942157 (Version 1)
Quarter: 2014Q1

REPORT INFORMATION
  Report Type: Report from Study
  Country: US (occurrence: US)
  Receive Date: 20140303
  Receipt Date: 20140303
  Transmission Date: 20141002
  Serious: No
  Sender: FDA-Public Use
  Company Number: US-ABBVIE-13P-163-1042623-00

PATIENT
  Age: 29 Year
  Sex: Female

DRUGS (11)
  1. HUMIRA [Suspect]
     Indication: CROHN^S DISEASE
     Dosage: LOADING DOSE
     Dates: start: 20130124
  2. ALBUTEROL [Concomitant]
     Indication: ASTHMA
     Dosage: INHALER
     Route: 055
  3. ALBUTEROL [Concomitant]
     Dosage: NEBULIZER ONCE EVERY 4 HOURS AS REQUIRED
  4. ADVAIR [Concomitant]
     Indication: ASTHMA
     Dosage: IN THE MORNING
  5. SINGULAIR [Concomitant]
     Indication: ASTHMA
     Dosage: 10 MG DAILY
  6. ZOFRAN [Concomitant]
     Indication: NAUSEA
  7. ENTOCORT [Concomitant]
     Indication: CROHN^S DISEASE
     Dosage: 2 TABLETS DAILY
  8. VALIUM [Concomitant]
     Indication: INSOMNIA
  9. FLONASE [Concomitant]
     Indication: PRODUCT USED FOR UNKNOWN INDICATION
     Dosage: 2 PUFFS EACH NOSTRIL DAILY
  10. AFRIN [Concomitant]
     Indication: PRODUCT USED FOR UNKNOWN INDICATION
     Dosage: SPRAY
     Route: 045
  11. TYLENOL [Concomitant]
     Indication: HEADACHE

REACTIONS (5)
  - Fatigue [Recovering/Resolving]
  - Injection site pain [Not Recovered/Not Resolved]
  - Abdominal distension [Not Recovered/Not Resolved]
  - Asthma [Not Recovered/Not Resolved]
  - Nausea [Not Recovered/Not Resolved]
